FAERS Safety Report 25765524 (Version 1)
Quarter: 2025Q3

REPORT INFORMATION
  Report Type: Report from Study
  Country: JP (occurrence: JP)
  Receive Date: 20250905
  Receipt Date: 20250905
  Transmission Date: 20251021
  Serious: Yes (Death, Congenital Anomaly)
  Sender: CSL BEHRING
  Company Number: JP-BEH-2025217825

PATIENT

DRUGS (1)
  1. HUMAN IMMUNOGLOBULIN G [Suspect]
     Active Substance: HUMAN IMMUNOGLOBULIN G
     Route: 064

REACTIONS (2)
  - Foetal chromosome abnormality [Fatal]
  - Foetal exposure during pregnancy [Unknown]
